FAERS Safety Report 8509725-X (Version None)
Quarter: 2012Q3

REPORT INFORMATION
  Report Type: 
  Country: None (occurrence: None)
  Receive Date: 20120713
  Receipt Date: 20120709
  Transmission Date: 20120928
  Serious: Yes (Hospitalization)
  Sender: FDA-Public Use
  Company Number: US-B.I. PHARMACEUTICALS,INC./RIDGEFIELD-2012-BP-15256BP

PATIENT
  Age: 70 Year
  Sex: Male

DRUGS (3)
  1. ZITHROMAX [Concomitant]
     Indication: UPPER RESPIRATORY TRACT INFECTION
     Dates: start: 20120701
  2. PRADAXA [Suspect]
     Indication: ATRIAL FIBRILLATION
     Dosage: 300 MG
     Route: 048
     Dates: start: 20120701
  3. LOVENOX [Suspect]
     Route: 058
     Dates: start: 20120701

REACTIONS (1)
  - HAEMORRHAGE INTRACRANIAL [None]
